FAERS Safety Report 5340868-8 (Version None)
Quarter: 2007Q2

REPORT INFORMATION
  Report Type: 
  Country: None (occurrence: None)
  Receive Date: 20070405
  Receipt Date: 20061116
  Transmission Date: 20071010
  Serious: No
  Sender: FDA-Public Use
  Company Number: US200611003445

PATIENT
  Age: 61 Year
  Sex: Female

DRUGS (4)
  1. CYMBALTA [Suspect]
     Indication: DEPRESSION
     Dosage: 20 MG, DAILY (1/D); ORAL
     Route: 048
     Dates: start: 20061016, end: 20061106
  2. HYDROCHLOROTHIAZIDE [Concomitant]
  3. LIITOR (ATORVASTATIN) [Concomitant]
  4. AMBIEN [Concomitant]

REACTIONS (3)
  - EAR PAIN [None]
  - ORAL PAIN [None]
  - PHARYNGOLARYNGEAL PAIN [None]
